FAERS Safety Report 5878056-9 (Version None)
Quarter: 2008Q3

REPORT INFORMATION
  Report Type: 
  Country: None (occurrence: None)
  Receive Date: 20080911
  Receipt Date: 20080904
  Transmission Date: 20090109
  Serious: Yes (Hospitalization)
  Sender: FDA-Public Use
  Company Number: US-JNJFOC-20080901677

PATIENT
  Sex: Male

DRUGS (2)
  1. RAZADYNE [Suspect]
     Route: 048
  2. RAZADYNE [Suspect]
     Indication: MEMORY IMPAIRMENT
     Route: 048

REACTIONS (2)
  - APPENDICECTOMY [None]
  - NAUSEA [None]
